FAERS Safety Report 9563514 (Version 1)
Quarter: 2013Q3

REPORT INFORMATION
  Report Type: Spontaneous
  Country: GB (occurrence: None)
  Receive Date: 20130926
  Receipt Date: 20130926
  Transmission Date: 20140515
  Serious: Yes (Hospitalization, Other)
  Sender: FDA-Public Use
  Company Number: AUR-APL-2013-07793

PATIENT
  Age: 86 Year
  Sex: Female

DRUGS (1)
  1. CEFALEXIN [Suspect]
     Indication: LOWER RESPIRATORY TRACT INFECTION
     Dosage: 1000 MG (250 MG, 4 IN 1 D), ORAL
     Route: 048
     Dates: start: 20121016, end: 20121018

REACTIONS (2)
  - Pneumonia [None]
  - Treatment failure [None]
